FAERS Safety Report 20308243 (Version 2)
Quarter: 2022Q1

REPORT INFORMATION
  Report Type: Spontaneous
  Country: IN (occurrence: IN)
  Receive Date: 20220107
  Receipt Date: 20220329
  Transmission Date: 20220423
  Serious: Yes (Other)
  Sender: FDA-Public Use
  Company Number: IN-PFIZER INC-202101857241

PATIENT
  Age: 65 Year
  Sex: Female

DRUGS (28)
  1. PALBOCICLIB [Suspect]
     Active Substance: PALBOCICLIB
     Indication: Breast cancer metastatic
     Dosage: 125 MG, CYCLIC (ONCE DAILY, 1ST CYCLE)
     Route: 048
     Dates: start: 20210406
  2. PALBOCICLIB [Suspect]
     Active Substance: PALBOCICLIB
     Dosage: 125 MG, CYCLIC (ONCE DAILY, 2ND CYCLE)
     Route: 048
     Dates: start: 20210511
  3. PALBOCICLIB [Suspect]
     Active Substance: PALBOCICLIB
     Dosage: 125 MG, CYCLIC (ONCE DAILY, 3RD CYCLE)
     Route: 048
     Dates: start: 20210608
  4. PALBOCICLIB [Suspect]
     Active Substance: PALBOCICLIB
     Dosage: 125 MG, CYCLIC (ONCE DAILY, 4TH CYCLE)
     Route: 048
     Dates: start: 20210707
  5. PALBOCICLIB [Suspect]
     Active Substance: PALBOCICLIB
     Dosage: 125 MG, CYCLIC (ONCE DAILY, 5TH CYCLE)
     Route: 048
     Dates: start: 20210804
  6. PALBOCICLIB [Suspect]
     Active Substance: PALBOCICLIB
     Dosage: 125 MG, CYCLIC (ONCE DAILY, 6TH CYCLE)
     Route: 048
     Dates: start: 20210831
  7. PALBOCICLIB [Suspect]
     Active Substance: PALBOCICLIB
     Dosage: 125 MG, CYCLIC (ONCE DAILY, 7TH CYCLE)
     Route: 048
     Dates: start: 20210930
  8. PALBOCICLIB [Suspect]
     Active Substance: PALBOCICLIB
     Dosage: 125 MG, CYCLIC (ONCE DAILY, 8TH CYCLE)
     Route: 048
     Dates: start: 20211028
  9. PALBOCICLIB [Suspect]
     Active Substance: PALBOCICLIB
     Dosage: 125 MG, CYCLIC (ONCE DAILY, 9TH CYCLE)
     Route: 048
     Dates: start: 20211125
  10. PALBOCICLIB [Suspect]
     Active Substance: PALBOCICLIB
     Dosage: 125 MG, CYCLIC (ONCE DAILY, 10TH CYCLE)
     Route: 048
     Dates: start: 20211223
  11. PALBOCICLIB [Suspect]
     Active Substance: PALBOCICLIB
     Dosage: 125 MG, CYCLIC (ONCE DAILY, 11TH CYCLE)
     Route: 048
     Dates: start: 20220120
  12. PALBOCICLIB [Suspect]
     Active Substance: PALBOCICLIB
     Dosage: 125 MG, CYCLIC (ONCE DAILY, 12TH CYCLE)
     Route: 048
     Dates: start: 20220217, end: 202203
  13. PALBOCICLIB [Suspect]
     Active Substance: PALBOCICLIB
     Dosage: 100 MG, CYCLIC (ONCE DAILY X 21 DAYS, 13TH CYCLE)
     Route: 048
     Dates: start: 20220321
  14. LETROZOLE [Concomitant]
     Active Substance: LETROZOLE
     Indication: Breast cancer metastatic
     Dosage: 2.5 MG, CYCLIC (1ST CYCLE)
     Dates: start: 20210406
  15. LETROZOLE [Concomitant]
     Active Substance: LETROZOLE
     Dosage: 2.5 MG, CYCLIC (2ND CYCLE)
     Dates: start: 20210511
  16. LETROZOLE [Concomitant]
     Active Substance: LETROZOLE
     Dosage: 2.5 MG, CYCLIC (3RD CYCLE)
     Dates: start: 20210608
  17. LETROZOLE [Concomitant]
     Active Substance: LETROZOLE
     Dosage: 2.5 MG, CYCLIC (4TH CYCLE)
     Dates: start: 20210707
  18. LETROZOLE [Concomitant]
     Active Substance: LETROZOLE
     Dosage: 2.5 MG, CYCLIC (5TH CYCLE)
     Dates: start: 20210804
  19. LETROZOLE [Concomitant]
     Active Substance: LETROZOLE
     Dosage: 2.5 MG, CYCLIC (6TH CYCLE)
     Dates: start: 20210831
  20. LETROZOLE [Concomitant]
     Active Substance: LETROZOLE
     Dosage: 2.5 MG, CYCLIC (7TH CYCLE)
     Dates: start: 20210930
  21. LETROZOLE [Concomitant]
     Active Substance: LETROZOLE
     Dosage: 2.5 MG, CYCLIC (8TH CYCLE)
     Dates: start: 20211028
  22. LETROZOLE [Concomitant]
     Active Substance: LETROZOLE
     Dosage: 2.5 MG, CYCLIC (9TH CYCLE)
     Dates: start: 20211125
  23. LETROZOLE [Concomitant]
     Active Substance: LETROZOLE
     Dosage: 2.5 MG, CYCLIC (10TH CYCLE)
     Dates: start: 20211223
  24. LETROZOLE [Concomitant]
     Active Substance: LETROZOLE
     Dosage: 2.5 MG, CYCLIC (11TH CYCLE)
     Dates: start: 20220120
  25. LETROZOLE [Concomitant]
     Active Substance: LETROZOLE
     Dosage: 2.5 MG, CYCLIC (12TH CYCLE)
     Dates: start: 20220217
  26. LETROZOLE [Concomitant]
     Active Substance: LETROZOLE
     Dosage: 2.5 MG, CYCLIC (13TH CYCLE)
     Dates: start: 20220321
  27. ZOLEDRONIC ACID [Concomitant]
     Active Substance: ZOLEDRONIC ACID
     Indication: Breast cancer metastatic
     Dosage: UNK
     Dates: start: 20210409
  28. CALCIUM\VITAMIN D [Concomitant]
     Active Substance: CALCIUM\VITAMIN D

REACTIONS (4)
  - SARS-CoV-2 test positive [Unknown]
  - Haemoglobin decreased [Unknown]
  - Mean cell volume increased [Unknown]
  - White blood cell count decreased [Unknown]

NARRATIVE: CASE EVENT DATE: 20220301
